FAERS Safety Report 6314504-8 (Version None)
Quarter: 2009Q3

REPORT INFORMATION
  Report Type: 
  Country: None (occurrence: None)
  Receive Date: 20090819
  Receipt Date: 20090811
  Transmission Date: 20100115
  Serious: Yes (Hospitalization)
  Sender: FDA-Public Use
  Company Number: FR-ASTRAZENECA-2009SE07537

PATIENT
  Sex: Female

DRUGS (2)
  1. ATACAND [Suspect]
     Indication: CARDIAC FAILURE
     Route: 048
     Dates: start: 20070101, end: 20090706
  2. FLEETPHOSPHOSODA [Suspect]
     Indication: BOWEL PREPARATION
     Route: 048
     Dates: start: 20090201

REACTIONS (3)
  - ANAEMIA [None]
  - NEPHROCALCINOSIS [None]
  - RENAL FAILURE CHRONIC [None]
